FAERS Safety Report 16887340 (Version 1)
Quarter: 2019Q4

REPORT INFORMATION
  Report Type: Spontaneous
  Country: SE (occurrence: SE)
  Receive Date: 20191004
  Receipt Date: 20191004
  Transmission Date: 20200122
  Serious: Yes (Hospitalization)
  Sender: FDA-Public Use
  Company Number: SE-JNJFOC-20191004769

PATIENT
  Age: 61 Year
  Sex: Female

DRUGS (3)
  1. IMUREL                             /00001501/ [Suspect]
     Active Substance: AZATHIOPRINE SODIUM
     Indication: RHEUMATOID ARTHRITIS
     Dates: start: 20071003, end: 20171120
  2. REMICADE [Suspect]
     Active Substance: INFLIXIMAB
     Indication: RHEUMATOID ARTHRITIS
     Route: 042
     Dates: start: 20000914, end: 20171120
  3. REMICADE [Suspect]
     Active Substance: INFLIXIMAB
     Route: 042
     Dates: start: 20020914, end: 20171120

REACTIONS (2)
  - Pulmonary fibrosis [Recovered/Resolved with Sequelae]
  - Alveolitis [Recovered/Resolved with Sequelae]

NARRATIVE: CASE EVENT DATE: 20171120
